FAERS Safety Report 12287346 (Version 1)
Quarter: 2016Q2

REPORT INFORMATION
  Report Type: Report from Study
  Country: BR (occurrence: BR)
  Receive Date: 20160420
  Receipt Date: 20160420
  Transmission Date: 20160815
  Serious: Yes (Hospitalization, Other)
  Sender: FDA-Public Use
  Company Number: PHHY2010BR101411

PATIENT
  Sex: Female
  Weight: 68 kg

DRUGS (2)
  1. ACLASTA [Suspect]
     Active Substance: ZOLEDRONIC ACID
     Indication: OSTEOPOROSIS
     Dosage: 5 MG, Q12MO (ONCE A YEAR)
     Route: 042
  2. ACTONEL [Concomitant]
     Active Substance: RISEDRONATE SODIUM
     Indication: PRODUCT USED FOR UNKNOWN INDICATION
     Route: 065

REACTIONS (14)
  - Attention deficit/hyperactivity disorder [Unknown]
  - Condition aggravated [Not Recovered/Not Resolved]
  - Pain [Unknown]
  - Mobility decreased [Unknown]
  - Fall [Unknown]
  - Spinal fracture [Unknown]
  - Finger deformity [Unknown]
  - Dysstasia [Unknown]
  - Osteoporosis [Not Recovered/Not Resolved]
  - Spinal disorder [Unknown]
  - Syncope [Unknown]
  - Osteopenia [Unknown]
  - Memory impairment [Not Recovered/Not Resolved]
  - Abasia [Unknown]
